FAERS Safety Report 11782550 (Version 1)
Quarter: 2015Q4

REPORT INFORMATION
  Report Type: Other
  Country: TR (occurrence: TR)
  Receive Date: 20151127
  Receipt Date: 20151127
  Transmission Date: 20160305
  Serious: Yes (Other)
  Sender: FDA-Public Use
  Company Number: TR-LUPIN PHARMACEUTICALS INC.-2015-03786

PATIENT
  Age: 40 Year
  Sex: Female

DRUGS (2)
  1. DICLOFENAC [Suspect]
     Active Substance: DICLOFENAC
     Indication: PRODUCT USED FOR UNKNOWN INDICATION
     Route: 065
  2. PARACETAMOL AND PROPYPHENAZONE COMBINATION [Suspect]
     Active Substance: ACETAMINOPHEN\PROPYPHENAZONE
     Indication: PRODUCT USED FOR UNKNOWN INDICATION
     Route: 065

REACTIONS (1)
  - Anaphylactic reaction [Unknown]
